FAERS Safety Report 6707516-3 (Version None)
Quarter: 2010Q2

REPORT INFORMATION
  Report Type: 
  Country: None (occurrence: None)
  Receive Date: 20100503
  Receipt Date: 20090427
  Transmission Date: 20101027
  Serious: Yes (Other)
  Sender: FDA-Public Use
  Company Number: US-BAYER-200917821NA

PATIENT
  Sex: Female

DRUGS (1)
  1. AVELOX [Suspect]
     Indication: CONCUSSION

REACTIONS (4)
  - DIZZINESS [None]
  - ERYTHEMA [None]
  - LYMPHADENOPATHY [None]
  - NAUSEA [None]
